FAERS Safety Report 8363128-X (Version None)
Quarter: 2012Q2

REPORT INFORMATION
  Report Type: 
  Country: None (occurrence: None)
  Receive Date: 20120514
  Receipt Date: 20120514
  Transmission Date: 20120825
  Serious: No
  Sender: FDA-Public Use
  Company Number: None

PATIENT
  Age: 56 Year
  Sex: Female
  Weight: 58.9676 kg

DRUGS (1)
  1. CYMBALTA [Suspect]
     Indication: DEPRESSION
     Dosage: 60 MG 1 DAILY PO
     Route: 048
     Dates: start: 20120101, end: 20120430

REACTIONS (10)
  - CONFUSIONAL STATE [None]
  - TINNITUS [None]
  - ANGER [None]
  - CRYING [None]
  - SUICIDAL IDEATION [None]
  - ADVERSE DRUG REACTION [None]
  - DIZZINESS [None]
  - DRUG WITHDRAWAL SYNDROME [None]
  - WRONG TECHNIQUE IN DRUG USAGE PROCESS [None]
  - PARAESTHESIA [None]
